FAERS Safety Report 21420621 (Version 1)
Quarter: 2022Q4

REPORT INFORMATION
  Report Type: Spontaneous
  Country: DE (occurrence: DE)
  Receive Date: 20221007
  Receipt Date: 20221007
  Transmission Date: 20230113
  Serious: Yes (Hospitalization, Other)
  Sender: FDA-Public Use
  Company Number: DE-ADRED-07761-01

PATIENT
  Age: 71 Year
  Sex: Male
  Weight: 83 kg

DRUGS (6)
  1. ASPIRIN [Suspect]
     Active Substance: ASPIRIN
     Indication: Product used for unknown indication
     Dosage: 100 MILLIGRAM, ONCE A DAY (1-0-0-0 )
     Route: 048
  2. LISINOPRIL [Suspect]
     Active Substance: LISINOPRIL
     Indication: Product used for unknown indication
     Dosage: 20 MILLIGRAM, ONCE A DAY (1-0-0-0)
     Route: 048
  3. TROSPIUM [Suspect]
     Active Substance: TROSPIUM
     Indication: Product used for unknown indication
     Dosage: 20 MILLIGRAM, TWO TIMES A DAY (, 1-0-1-0, )
     Route: 048
  4. METAMIZOL [Concomitant]
     Active Substance: METAMIZOLE SODIUM
     Indication: Product used for unknown indication
     Dosage: 500 MILLIGRAM, AS NECESSARY
     Route: 048
  5. DALTEPARIN [Concomitant]
     Active Substance: DALTEPARIN
     Indication: Product used for unknown indication
     Dosage: 5000 INTERNATIONAL UNIT, ONCE A DAY (0-0-1-0)
     Route: 058
  6. AMLODIPINE BESYLATE [Concomitant]
     Active Substance: AMLODIPINE BESYLATE
     Indication: Product used for unknown indication
     Dosage: 5 MILLIGRAM, ONCE A DAY (0-0-1-0,)
     Route: 048

REACTIONS (7)
  - Renal impairment [Unknown]
  - Pain [Unknown]
  - Haematuria [Unknown]
  - General physical health deterioration [Unknown]
  - Device occlusion [Unknown]
  - Renal function test abnormal [Unknown]
  - Pollakiuria [Unknown]
